FAERS Safety Report 11926969 (Version 1)
Quarter: 2016Q1

REPORT INFORMATION
  Report Type: Report from Study
  Country: CA (occurrence: CA)
  Receive Date: 20160119
  Receipt Date: 20160119
  Transmission Date: 20160526
  Serious: Yes (Hospitalization, Other)
  Sender: FDA-Public Use
  Company Number: CA-JNJFOC-20160108182

PATIENT
  Age: 46 Year
  Sex: Male

DRUGS (1)
  1. SIMPONI [Suspect]
     Active Substance: GOLIMUMAB
     Indication: CROHN^S DISEASE
     Route: 058
     Dates: start: 201411

REACTIONS (5)
  - Blood pressure increased [Unknown]
  - Haematemesis [Unknown]
  - Crohn^s disease [Not Recovered/Not Resolved]
  - Diabetic foot [Unknown]
  - Dehydration [Unknown]

NARRATIVE: CASE EVENT DATE: 20151220
